FAERS Safety Report 10500175 (Version 2)
Quarter: 2016Q4

REPORT INFORMATION
  Report Type: Spontaneous
  Country: US (occurrence: US)
  Receive Date: 20141006
  Receipt Date: 20161006
  Transmission Date: 20170206
  Serious: No
  Sender: FDA-Public Use
  Company Number: US-AMGEN INC.-USASP2014050254

PATIENT
  Age: 70 Year
  Sex: Female
  Weight: 104.31 kg

DRUGS (4)
  1. INFLUENZA [Concomitant]
     Active Substance: INFLUENZA VIRUS VACCINE
     Dosage: 0.5 ML, UNK
     Route: 065
     Dates: start: 20110916
  2. ADACEL TDAP [Concomitant]
     Active Substance: TETANUS TOXOID, REDUCED DIPHTHERIA TOXOID AND ACELLULAR PERTUSSIS VACCINE ADSORBED, TDAP
     Dosage: 0.5 ML, UNK
     Dates: start: 20151020
  3. PNEUMOCOCCAL CONJUGATE VACCINE [Concomitant]
     Active Substance: PNEUMOCOCCAL VACCINE POLYVALENT
     Dosage: 0.5 ML, UNK
     Route: 065
     Dates: start: 20100927
  4. PROLIA [Suspect]
     Active Substance: DENOSUMAB
     Indication: OSTEOPOROSIS POSTMENOPAUSAL
     Dosage: UNK, Q6MO
     Route: 058
     Dates: start: 20131230

REACTIONS (8)
  - Rosacea [Unknown]
  - Rash pruritic [Recovered/Resolved]
  - Injection site pain [Unknown]
  - Acne [Unknown]
  - Acrochordon [Unknown]
  - Rash generalised [Recovered/Resolved]
  - Ear pruritus [Unknown]
  - Drug hypersensitivity [Unknown]

NARRATIVE: CASE EVENT DATE: 201404
